FAERS Safety Report 12643731 (Version 1)
Quarter: 2016Q3

REPORT INFORMATION
  Report Type: Spontaneous
  Country: US (occurrence: US)
  Receive Date: 20160811
  Receipt Date: 20160811
  Transmission Date: 20161109
  Serious: Yes (Other)
  Sender: FDA-Public Use
  Company Number: US-BAYER-2016-153733

PATIENT

DRUGS (1)
  1. XOFIGO [Suspect]
     Active Substance: RADIUM RA-223 DICHLORIDE
     Dosage: UNK
     Dates: start: 20160707

REACTIONS (5)
  - Haemoglobin decreased [None]
  - Deep vein thrombosis [None]
  - Metastases to meninges [None]
  - Haematoma [None]
  - Metastases to central nervous system [None]

NARRATIVE: CASE EVENT DATE: 201607
